FAERS Safety Report 13442199 (Version 1)
Quarter: 2017Q2

REPORT INFORMATION
  Report Type: Other
  Country: CA (occurrence: CA)
  Receive Date: 20170414
  Receipt Date: 20170414
  Transmission Date: 20170830
  Serious: Yes (Other)
  Sender: FDA-Public Use
  Company Number: CA-APOTEX-2017AP009829

PATIENT
  Age: 13 Year
  Sex: Female

DRUGS (2)
  1. APO-FENTANYL MATRIX [Suspect]
     Active Substance: FENTANYL
     Indication: EXTRASYSTOLES
     Dosage: 50 ?G, UNK
     Route: 042
  2. PROPOFOL. [Suspect]
     Active Substance: PROPOFOL
     Indication: EXTRASYSTOLES
     Dosage: 100 MG, UNK
     Route: 042

REACTIONS (1)
  - Drug ineffective [Unknown]
